FAERS Safety Report 6467993-2 (Version None)
Quarter: 2009Q4

REPORT INFORMATION
  Report Type: 
  Country: None (occurrence: None)
  Receive Date: 20091119
  Receipt Date: 20090724
  Transmission Date: 20100525
  Serious: No
  Sender: FDA-Public Use
  Company Number: WAES 0906USA05669

PATIENT
  Age: 46 Year
  Sex: Male
  Weight: 110.2241 kg

DRUGS (5)
  1. JANUVIA [Suspect]
     Indication: TYPE 2 DIABETES MELLITUS
     Dosage: 100 MG/DAILY/PO
     Route: 048
     Dates: start: 20080701, end: 20090201
  2. BENICAR HCT [Concomitant]
  3. GLUCOVANCE [Concomitant]
  4. VYTORIN [Concomitant]
  5. METFORMIN HCL [Concomitant]

REACTIONS (2)
  - ASPARTATE AMINOTRANSFERASE INCREASED [None]
  - RENAL FAILURE [None]
